FAERS Safety Report 8476947 (Version 10)
Quarter: 2016Q1

REPORT INFORMATION
  Report Type: Spontaneous
  Country: AU (occurrence: AU)
  Receive Date: 20120326
  Receipt Date: 20160112
  Transmission Date: 20160526
  Serious: Yes (Hospitalization)
  Sender: FDA-Public Use
  Company Number: PHHY2012AU021310

PATIENT
  Age: 57 Year
  Sex: Male

DRUGS (2)
  1. TYSABRI [Suspect]
     Active Substance: NATALIZUMAB
     Indication: RELAPSING-REMITTING MULTIPLE SCLEROSIS
     Dosage: 300 MG, QMO
     Route: 042
     Dates: start: 2007, end: 20111026
  2. GILENYA [Suspect]
     Active Substance: FINGOLIMOD HYDROCHLORIDE
     Indication: RELAPSING-REMITTING MULTIPLE SCLEROSIS
     Route: 048
     Dates: start: 20111205, end: 20120312

REACTIONS (10)
  - Ataxia [Unknown]
  - Anxiety [Unknown]
  - Hemianopia homonymous [Unknown]
  - Progressive multifocal leukoencephalopathy [Recovered/Resolved]
  - Malaise [Recovering/Resolving]
  - Pyelonephritis acute [Recovered/Resolved]
  - Visual field defect [Recovering/Resolving]
  - Central nervous system lesion [Recovering/Resolving]
  - Muscular weakness [Unknown]
  - Gait disturbance [Unknown]

NARRATIVE: CASE EVENT DATE: 201112
